FAERS Safety Report 9091026 (Version 1)
Quarter: 2013Q1

REPORT INFORMATION
  Report Type: Spontaneous
  Country: US (occurrence: US)
  Receive Date: 20130131
  Receipt Date: 20130131
  Transmission Date: 20140127
  Serious: Yes (Other)
  Sender: FDA-Public Use
  Company Number: US-009507513-1301USA013584

PATIENT
  Sex: Female

DRUGS (12)
  1. SINGULAIR [Suspect]
  2. ARIPIPRAZOLE [Concomitant]
  3. ALBUTEROL [Concomitant]
  4. ZOLPIDEM TARTRATE [Concomitant]
  5. CYCLOBENZAPRINE HYDROCHLORIDE [Concomitant]
  6. VENLAFAXINE HYDROCHLORIDE [Concomitant]
  7. FLUTICASONE [Concomitant]
  8. METFORMIN [Concomitant]
  9. OMEPRAZOLE [Concomitant]
  10. PRAZOSIN [Concomitant]
  11. TRAZODONE HYDROCHLORIDE [Concomitant]
  12. DIAZEPAM [Concomitant]

REACTIONS (1)
  - Suicide attempt [Unknown]
